FAERS Safety Report 17026303 (Version 3)
Quarter: 2020Q1

REPORT INFORMATION
  Report Type: Report from Study
  Country: None (occurrence: US)
  Receive Date: 20191113
  Receipt Date: 20200226
  Transmission Date: 20200409
  Serious: Yes (Hospitalization)
  Sender: FDA-Public Use
  Company Number: US-ABBVIE-19K-163-2996646-00

PATIENT
  Age: 44 Year
  Sex: Female
  Weight: 83.08 kg

DRUGS (4)
  1. HUMIRA [Suspect]
     Active Substance: ADALIMUMAB
     Indication: RHEUMATOID ARTHRITIS
     Route: 058
  2. HUMIRA [Suspect]
     Active Substance: ADALIMUMAB
     Indication: COLITIS ULCERATIVE
  3. HUMIRA [Suspect]
     Active Substance: ADALIMUMAB
     Indication: CROHN^S DISEASE
  4. REMICADE [Suspect]
     Active Substance: INFLIXIMAB
     Indication: PRODUCT USED FOR UNKNOWN INDICATION
     Route: 065

REACTIONS (17)
  - Lactic acidosis [Unknown]
  - Respiratory fume inhalation disorder [Unknown]
  - White blood cell count abnormal [Recovered/Resolved]
  - Chills [Unknown]
  - Malaise [Unknown]
  - Abdominal pain [Recovered/Resolved]
  - Liver function test abnormal [Recovered/Resolved]
  - Dyspnoea [Unknown]
  - Pyrexia [Unknown]
  - Haemoptysis [Unknown]
  - Fatigue [Unknown]
  - Viral infection [Unknown]
  - Fatigue [Recovered/Resolved]
  - Cough [Unknown]
  - Respiratory disorder [Unknown]
  - Red blood cell count abnormal [Recovered/Resolved]
  - Asthenia [Unknown]

NARRATIVE: CASE EVENT DATE: 2019
